FAERS Safety Report 9904401 (Version 1)
Quarter: 2014Q1

REPORT INFORMATION
  Report Type: Spontaneous
  Country: RU (occurrence: RU)
  Receive Date: 20140218
  Receipt Date: 20140218
  Transmission Date: 20141002
  Serious: Yes (Other)
  Sender: FDA-Public Use
  Company Number: RU-ASTRAZENECA-2014SE09825

PATIENT
  Age: 6 Month
  Sex: 0

DRUGS (1)
  1. NEXIUM [Suspect]
     Indication: GASTROOESOPHAGEAL REFLUX DISEASE
     Route: 048
     Dates: start: 2014, end: 2014

REACTIONS (3)
  - Abdominal distension [Recovered/Resolved]
  - Eructation [Recovered/Resolved]
  - Off label use [Recovered/Resolved]
